FAERS Safety Report 21766015 (Version 2)
Quarter: 2022Q4

REPORT INFORMATION
  Report Type: Spontaneous
  Country: US (occurrence: US)
  Receive Date: 20221222
  Receipt Date: 20221223
  Transmission Date: 20230112
  Serious: Yes (Other)
  Sender: FDA-Public Use
  Company Number: US-BAYER-2022P029803

PATIENT
  Age: 49 Year
  Sex: Male
  Weight: 133.81 kg

DRUGS (4)
  1. STIVARGA [Suspect]
     Active Substance: REGORAFENIB
     Indication: Product used for unknown indication
     Dosage: UNK
     Dates: end: 20221118
  2. LONSURF [Suspect]
     Active Substance: TIPIRACIL HYDROCHLORIDE\TRIFLURIDINE
     Indication: Colon cancer
     Dosage: 80 MG, BID
     Route: 048
  3. METAMUCIL [Concomitant]
     Active Substance: PLANTAGO SEED
     Indication: Product used for unknown indication
  4. PROBIOTICS NOS [Concomitant]
     Active Substance: PROBIOTICS NOS
     Indication: Product used for unknown indication

REACTIONS (10)
  - Malignant neoplasm progression [None]
  - Throat clearing [None]
  - Disorientation [None]
  - Confusional state [None]
  - Constipation [None]
  - Fatigue [None]
  - Dizziness [None]
  - Malaise [None]
  - Pain [None]
  - Blood potassium decreased [None]
